FAERS Safety Report 20443535 (Version 1)
Quarter: 2022Q1

REPORT INFORMATION
  Report Type: Spontaneous
  Country: US (occurrence: US)
  Receive Date: 20220208
  Receipt Date: 20220208
  Transmission Date: 20220423
  Serious: No
  Sender: FDA-Public Use
  Company Number: US-PFIZER INC-202200156888

PATIENT
  Age: 78 Year
  Sex: Female
  Weight: 47.63 kg

DRUGS (1)
  1. DOXYCYCLINE HYCLATE [Suspect]
     Active Substance: DOXYCYCLINE HYCLATE
     Indication: Bacterial infection
     Dosage: 100 MG, 1X/DAY (FOR 10 DAYS)
     Route: 048

REACTIONS (3)
  - COVID-19 [Unknown]
  - Cough [Unknown]
  - Off label use [Unknown]
